FAERS Safety Report 13066045 (Version 5)
Quarter: 2017Q3

REPORT INFORMATION
  Report Type: Spontaneous
  Country: KR (occurrence: KR)
  Receive Date: 20161227
  Receipt Date: 20170801
  Transmission Date: 20171127
  Serious: Yes (Hospitalization, Other)
  Sender: FDA-Public Use
  Company Number: KR-009507513-1612KOR013210

PATIENT
  Age: 59 Year
  Sex: Male
  Weight: 73.6 kg

DRUGS (44)
  1. EMEND (FOSAPREPITANT DIMEGLUMINE) [Suspect]
     Active Substance: FOSAPREPITANT DIMEGLUMINE
     Dosage: 150 MG, ONCE
     Route: 042
     Dates: start: 20170102, end: 20170102
  2. PADEXOL [Concomitant]
     Indication: LUNG ADENOCARCINOMA
     Dosage: STRENGTH: 0.3 G/50 ML, 250 MG, ONCE, CYCLE: 1
     Route: 042
     Dates: start: 20161020, end: 20161020
  3. DEXAMETHASONE SODIUM PHOSPHATE. [Concomitant]
     Active Substance: DEXAMETHASONE SODIUM PHOSPHATE
     Dosage: STRENGTH: 5 MG/ML, 10 MG, ONCE
     Route: 042
     Dates: start: 20161114, end: 20161114
  4. KYTRIL [Concomitant]
     Active Substance: GRANISETRON HYDROCHLORIDE
     Dosage: 3 MG, ONCE
     Route: 042
     Dates: start: 20161212, end: 20161212
  5. KYTRIL [Concomitant]
     Active Substance: GRANISETRON HYDROCHLORIDE
     Dosage: 3 MG, ONCE
     Route: 042
     Dates: start: 20170102, end: 20170102
  6. TRAJENTA [Concomitant]
     Active Substance: LINAGLIPTIN
     Indication: DIABETES MELLITUS
     Dosage: 1 TABLET, QD
     Route: 048
  7. PADEXOL [Concomitant]
     Dosage: STRENGTH: 0.3 G/50 ML, 250 MG, ONCE, CYCLE: 3
     Route: 042
     Dates: start: 20161212, end: 20161212
  8. PADEXOL [Concomitant]
     Dosage: STRENGTH: 0.3 G/50 ML, 250 MG, ONCE, CYCLE: 4
     Route: 042
     Dates: start: 20170102, end: 20170102
  9. NEOPLATIN [Concomitant]
     Active Substance: CISPLATIN
     Indication: LUNG ADENOCARCINOMA
     Dosage: STRENGTH: 450 MG/45 ML, 450 MG, ONCE, CYCLE: 1
     Route: 042
     Dates: start: 20161020, end: 20161020
  10. NEOPLATIN [Concomitant]
     Active Substance: CISPLATIN
     Dosage: STRENGTH: 450 MG/45 ML, 450 MG, ONCE, CYCLE: 2
     Route: 042
     Dates: start: 20161114, end: 20161114
  11. CURAN [Concomitant]
     Active Substance: RANITIDINE HYDROCHLORIDE
     Indication: PREMEDICATION
     Dosage: STRENGTH: 50 MG/2 ML, 50MG, ONCE
     Route: 042
     Dates: start: 20161020, end: 20161020
  12. CURAN [Concomitant]
     Active Substance: RANITIDINE HYDROCHLORIDE
     Dosage: STRENGTH: 50 MG/2 ML, 50MG, ONCE
     Route: 042
     Dates: start: 20161114, end: 20161114
  13. NEOPLATIN [Concomitant]
     Active Substance: CISPLATIN
     Dosage: STRENGTH: 450 MG/45 ML, 450 MG, ONCE, CYCLE: 3
     Route: 042
     Dates: start: 20161212, end: 20161212
  14. KYTRIL [Concomitant]
     Active Substance: GRANISETRON HYDROCHLORIDE
     Indication: PROPHYLAXIS OF NAUSEA AND VOMITING
     Dosage: 3 MG, ONCE
     Route: 042
     Dates: start: 20161020, end: 20161020
  15. KYTRIL [Concomitant]
     Active Substance: GRANISETRON HYDROCHLORIDE
     Dosage: 3 MG, ONCE
     Route: 042
     Dates: start: 20161114, end: 20161114
  16. PENIRAMIN [Concomitant]
     Indication: PROPHYLAXIS
     Dosage: 4 MG, ONCE
     Route: 042
     Dates: start: 20161020, end: 20161020
  17. VASTINAN MR [Concomitant]
     Indication: ANGINA PECTORIS
     Dosage: 35 MG (1 TABLET), BID
     Route: 048
  18. PADEXOL [Concomitant]
     Dosage: STRENGTH: 0.3 G/50 ML, 450 MG, ONCE, CYCLE: 2
     Route: 042
     Dates: start: 20161114, end: 20161114
  19. NEOPLATIN [Concomitant]
     Active Substance: CISPLATIN
     Dosage: STRENGTH: 450 MG/45 ML, 450 MG, ONCE, CYCLE: 4
     Route: 042
     Dates: start: 20170102, end: 20170102
  20. DEXAMETHASONE SODIUM PHOSPHATE. [Concomitant]
     Active Substance: DEXAMETHASONE SODIUM PHOSPHATE
     Indication: PREMEDICATION
     Dosage: STRENGTH: 5 MG/ML, 10 MG, ONCE
     Route: 042
     Dates: start: 20161020, end: 20161020
  21. LANSTON [Concomitant]
     Active Substance: LANSOPRAZOLE
     Indication: PROPHYLAXIS
     Dosage: 30 MG (1 TABLET), QD
     Route: 048
     Dates: start: 20161019, end: 20161028
  22. MYPOL [Concomitant]
     Indication: PAIN
     Dosage: 2 CAPSULES, TID
     Route: 048
     Dates: start: 20161012, end: 20161014
  23. TALION (BEPOTASTINE BESYLATE) [Concomitant]
     Active Substance: BEPOTASTINE
     Indication: PROPHYLAXIS
     Dosage: 10 MG (1 TABLET), BID
     Route: 048
     Dates: start: 20161012, end: 20161222
  24. FENTANYL. [Concomitant]
     Active Substance: FENTANYL
     Indication: PAIN
     Dosage: 12MCG/H5, 25 CM^2, 1 PK,QD
     Route: 062
     Dates: start: 20161007, end: 201610
  25. EMEND (FOSAPREPITANT DIMEGLUMINE) [Suspect]
     Active Substance: FOSAPREPITANT DIMEGLUMINE
     Indication: PROPHYLAXIS OF NAUSEA AND VOMITING
     Dosage: 150 MG, ONCE
     Route: 042
     Dates: start: 20161020, end: 20161020
  26. PENIRAMIN [Concomitant]
     Dosage: 4 MG, ONCE
     Route: 042
     Dates: start: 20161114, end: 20161114
  27. PENIRAMIN [Concomitant]
     Dosage: 4 MG, ONCE
     Route: 042
     Dates: start: 20161212, end: 20161212
  28. LANTUS [Concomitant]
     Active Substance: INSULIN GLARGINE
     Indication: DIABETES MELLITUS
     Dosage: STRENGTH: 100 IU/ML, DOSE:UNKNOWN AND UNIT:PEN, QD
     Route: 058
  29. EMEND (FOSAPREPITANT DIMEGLUMINE) [Suspect]
     Active Substance: FOSAPREPITANT DIMEGLUMINE
     Dosage: 150 MG, ONCE
     Route: 042
     Dates: start: 20161114, end: 20161114
  30. EMEND (FOSAPREPITANT DIMEGLUMINE) [Suspect]
     Active Substance: FOSAPREPITANT DIMEGLUMINE
     Dosage: 150 MG, ONCE
     Route: 042
     Dates: start: 20161212, end: 20161212
  31. DEXAMETHASONE SODIUM PHOSPHATE. [Concomitant]
     Active Substance: DEXAMETHASONE SODIUM PHOSPHATE
     Dosage: STRENGTH: 5 MG/ML, 10 MG, ONCE
     Route: 042
     Dates: start: 20170102, end: 20170102
  32. AIRTAL [Concomitant]
     Active Substance: ACECLOFENAC
     Indication: PROPHYLAXIS
     Dosage: 100 MG (1 TABLET), BID
     Route: 048
     Dates: start: 20161012, end: 20161019
  33. PLAVIX [Concomitant]
     Active Substance: CLOPIDOGREL BISULFATE
     Indication: ANGINA PECTORIS
     Dosage: 75 MG (TABLET) , QD
     Route: 048
  34. DEXAMETHASONE SODIUM PHOSPHATE. [Concomitant]
     Active Substance: DEXAMETHASONE SODIUM PHOSPHATE
     Dosage: STRENGTH: 5 MG/ML, 10 MG, ONCE
     Route: 042
     Dates: start: 20161212, end: 20161212
  35. CURAN [Concomitant]
     Active Substance: RANITIDINE HYDROCHLORIDE
     Dosage: STRENGTH: 50 MG/2 ML, 50MG, ONCE
     Route: 042
     Dates: start: 20161212, end: 20161212
  36. SIGMART [Concomitant]
     Active Substance: NICORANDIL
     Indication: HYPERTENSION
     Dosage: 5 MG (1 TABLET), QD
     Route: 048
  37. XYZAL [Concomitant]
     Active Substance: LEVOCETIRIZINE DIHYDROCHLORIDE
     Indication: PROPHYLAXIS
     Dosage: 5 MG (1 TABLET), QD
     Route: 048
     Dates: start: 20161021, end: 20161109
  38. CURAN [Concomitant]
     Active Substance: RANITIDINE HYDROCHLORIDE
     Dosage: STRENGTH: 50 MG/2 ML, 50MG, ONCE
     Route: 042
     Dates: start: 20170102, end: 20170102
  39. PENIRAMIN [Concomitant]
     Dosage: 4 MG, ONCE
     Route: 042
     Dates: start: 20170102, end: 20170102
  40. KYTRIL [Concomitant]
     Active Substance: GRANISETRON HYDROCHLORIDE
     Indication: PROPHYLAXIS
     Dosage: 1 MG (1 TABLET), QD
     Route: 048
     Dates: start: 20161021, end: 20161022
  41. LIPITOR [Concomitant]
     Active Substance: ATORVASTATIN CALCIUM
     Indication: HYPERTENSION
     Dosage: 20 MG (1 TABLET), QD
     Route: 048
  42. NAXOZOL [Concomitant]
     Indication: PAIN
     Dosage: 1 TABLET, BID, STRENGTH:500/20MG
     Route: 048
     Dates: start: 20161021, end: 20161028
  43. RANITIDINE HYDROCHLORIDE (+) SUCRALFATE (+) TRIPOTASSIUM DICITRATOBISM [Concomitant]
     Indication: PROPHYLAXIS
     Dosage: 1 TABLET, QD
     Route: 048
     Dates: start: 20161012, end: 20161026
  44. HUMALOG [Concomitant]
     Active Substance: INSULIN LISPRO
     Indication: DIABETES MELLITUS
     Dosage: STRENGTH: 100 IU/ML, 1 PEN, QD
     Route: 058

REACTIONS (5)
  - Rectal ulcer [Recovered/Resolved]
  - Oral pain [Recovered/Resolved]
  - Sputum abnormal [Recovered/Resolved]
  - Gastric ulcer [Recovered/Resolved]
  - Anal abscess [Recovered/Resolved]

NARRATIVE: CASE EVENT DATE: 20161027
